FAERS Safety Report 9392343 (Version 1)
Quarter: 2013Q3

REPORT INFORMATION
  Report Type: Spontaneous
  Country: CA (occurrence: CA)
  Receive Date: 20130710
  Receipt Date: 20130710
  Transmission Date: 20140515
  Serious: Yes (Hospitalization)
  Sender: FDA-Public Use
  Company Number: CA-ROCHE-1246866

PATIENT
  Age: 55 Year
  Sex: Female

DRUGS (2)
  1. XELODA [Suspect]
     Indication: PRODUCT USED FOR UNKNOWN INDICATION
     Dosage: THERAPY DURATION: 4 MONTHS
     Route: 065
  2. TYKERB [Suspect]
     Indication: PRODUCT USED FOR UNKNOWN INDICATION
     Dosage: THERAPY DURATION: 10 MONTHS
     Route: 048

REACTIONS (10)
  - Breast cancer metastatic [Unknown]
  - Cardiac failure [Unknown]
  - Cardiotoxicity [Unknown]
  - Diarrhoea [Unknown]
  - Feeling hot [Unknown]
  - Malaise [Unknown]
  - Malignant neoplasm progression [Unknown]
  - Myocardial infarction [Unknown]
  - Oropharyngeal pain [Unknown]
  - Pyrexia [Unknown]
